FAERS Safety Report 14422470 (Version 4)
Quarter: 2018Q2

REPORT INFORMATION
  Report Type: Spontaneous
  Country: US (occurrence: US)
  Receive Date: 20180123
  Receipt Date: 20180402
  Transmission Date: 20180711
  Serious: Yes (Hospitalization, Other)
  Sender: FDA-Public Use
  Company Number: US-BIOGEN-2018BI00513073

PATIENT
  Age: 13 Year
  Sex: Female
  Weight: 18.1 kg

DRUGS (22)
  1. HYDROCHLOROTHIAZIDE. [Concomitant]
     Active Substance: HYDROCHLOROTHIAZIDE
     Indication: PRODUCT USED FOR UNKNOWN INDICATION
     Dosage: TAKE 0.5 TAB BY MOUTH TWICE A DAY
     Route: 048
  2. REFRESH LACRI LUBE [Concomitant]
     Indication: PRODUCT USED FOR UNKNOWN INDICATION
     Dosage: PLACE 0.5 INCHES INTO BOTH EYES FOUR TIMES A DAY
     Route: 065
  3. DOXYCYCLINE MONOHYDRATE [Concomitant]
     Active Substance: DOXYCYCLINE
     Indication: PRODUCT USED FOR UNKNOWN INDICATION
     Route: 050
  4. MESALAMINE. [Concomitant]
     Active Substance: MESALAMINE
     Indication: PRODUCT USED FOR UNKNOWN INDICATION
     Dosage: PLACE 0.5 SUPPOSITORIES RECTALLY EVERY NIGHT AT BEDTIME
     Route: 054
  5. SODIUM BICARBONATE. [Concomitant]
     Active Substance: SODIUM BICARBONATE
     Indication: PRODUCT USED FOR UNKNOWN INDICATION
     Dosage: TAKE 3 TAB BY MOUTH FOUR TIMES PER DAY
     Route: 048
  6. TRILEPTAL [Concomitant]
     Active Substance: OXCARBAZEPINE
     Indication: PRODUCT USED FOR UNKNOWN INDICATION
     Dosage: 300 MG/5ML; TAKE 1.5 ML BY MOUTH TWO TIMES PER DAY
     Route: 048
  7. ZANTAC [Concomitant]
     Active Substance: RANITIDINE HYDROCHLORIDE
     Indication: PRODUCT USED FOR UNKNOWN INDICATION
     Dosage: TAKE 0.5 TABS BY MOUTH TWO TIMES PER DAY FOR THE STOMACH
     Route: 048
  8. GLYCERIN. [Concomitant]
     Active Substance: GLYCERIN
     Indication: CONSTIPATION
     Dosage: PLACE 1 SUPOSSITORY RECTALLY 2-3 TIMES A DAY AS NEEDED
     Route: 054
  9. SPINRAZA [Suspect]
     Active Substance: NUSINERSEN
     Dosage: DOSE 2
     Route: 065
     Dates: start: 20171129
  10. DAKINS FULL [Concomitant]
     Active Substance: SODIUM HYPOCHLORITE
     Indication: PRODUCT USED FOR UNKNOWN INDICATION
     Dosage: APPLY 30 ML TOPICALLY ONE TIME PER DAY FOR 30 DAYS
     Route: 061
  11. SPINRAZA [Suspect]
     Active Substance: NUSINERSEN
     Dosage: DOSE 3
     Route: 065
     Dates: start: 20171218
  12. FUROSEMIDE. [Concomitant]
     Active Substance: FUROSEMIDE
     Indication: PRODUCT USED FOR UNKNOWN INDICATION
     Dosage: TAKE 1 TAB BY MOUTH TWO TIMES PER DAY
     Route: 048
  13. ZINC SULFATE [Concomitant]
     Active Substance: ZINC SULFATE\ZINC SULFATE ANHYDROUS
     Indication: PRODUCT USED FOR UNKNOWN INDICATION
     Dosage: PLACE 1.6 ML VIA G-TUBE ONE TIMES PER DAY FOR 30 DAYS
     Route: 050
  14. SODIUM CHLORIDE. [Concomitant]
     Active Substance: SODIUM CHLORIDE
     Indication: PRODUCT USED FOR UNKNOWN INDICATION
     Dosage: INHALE 15 ML AS DIRECTED EVERY TWO HOURS AS NEEDED (NASAL CONGESTION)
     Route: 065
  15. SPINRAZA [Suspect]
     Active Substance: NUSINERSEN
     Indication: SPINAL MUSCULAR ATROPHY
     Dosage: DOSE 1
     Route: 065
     Dates: start: 20171110
  16. POTASSIUM CITRATE-CITRIC ACID [Concomitant]
     Active Substance: CITRIC ACID MONOHYDRATE\POTASSIUM CITRATE
     Indication: PRODUCT USED FOR UNKNOWN INDICATION
     Dosage: TAKE 4 ML BY MOUTH THREE TIMES PER DAY FOR 120 DAYS
     Route: 048
  17. NYSTATIN. [Concomitant]
     Active Substance: NYSTATIN
     Indication: PRODUCT USED FOR UNKNOWN INDICATION
     Dosage: POWDER; 10000 UNITS/GRAM; APPLY WITH PICC DRESSING CHANGES
     Route: 065
  18. KEPPRA [Concomitant]
     Active Substance: LEVETIRACETAM
     Indication: PRODUCT USED FOR UNKNOWN INDICATION
     Dosage: TAKE 3 ML BY MOUTH EVERY MORNING
     Route: 048
  19. KEPPRA [Concomitant]
     Active Substance: LEVETIRACETAM
     Dosage: TAKE 3.5 ML BY MOUTH EVERY EVENING
     Route: 048
  20. SODIUM CHLORIDE. [Concomitant]
     Active Substance: SODIUM CHLORIDE
     Dosage: INHALE 3 ML AS DIRECTED EVERY 2 HOURS AS NEEDED
     Route: 065
  21. XOPENEX [Concomitant]
     Active Substance: LEVALBUTEROL HYDROCHLORIDE
     Indication: PRODUCT USED FOR UNKNOWN INDICATION
     Dosage: INHALE 3 ML AS DIRECTED EVERY 4 HOURS AS NEEDED (DESATURATION NOT RELIVED WITH SUCTION.COUGH ASSIST)
     Route: 065
  22. POLYETHLENE GLYCOL [Concomitant]
     Indication: FAECES HARD
     Dosage: TAKE 8 G BY MOUTH 2 TIMES PER DAY AS NEEDED
     Route: 065

REACTIONS (16)
  - Haemoglobin decreased [Unknown]
  - Weight decreased [Unknown]
  - Diarrhoea [Unknown]
  - Metabolic acidosis [Not Recovered/Not Resolved]
  - Urine protein/creatinine ratio increased [Unknown]
  - Wound [Unknown]
  - Dehydration [Not Recovered/Not Resolved]
  - Thrombocytopenia [Not Recovered/Not Resolved]
  - Blood fibrinogen increased [Unknown]
  - Gastroenteritis [Not Recovered/Not Resolved]
  - Coagulation time prolonged [Not Recovered/Not Resolved]
  - Haemorrhage [Unknown]
  - Metamyelocyte count increased [Unknown]
  - Inappropriate schedule of drug administration [Unknown]
  - Blood triglycerides increased [Unknown]
  - Activated partial thromboplastin time prolonged [Unknown]

NARRATIVE: CASE EVENT DATE: 201711
